FAERS Safety Report 19219865 (Version 1)
Quarter: 2021Q2

REPORT INFORMATION
  Report Type: Spontaneous
  Country: RS (occurrence: RS)
  Receive Date: 20210506
  Receipt Date: 20210506
  Transmission Date: 20210717
  Serious: Yes (Other)
  Sender: FDA-Public Use
  Company Number: RS-ROCHE-2822781

PATIENT

DRUGS (1)
  1. MABTHERA [Suspect]
     Active Substance: RITUXIMAB
     Indication: PRODUCT USED FOR UNKNOWN INDICATION
     Route: 065

REACTIONS (6)
  - Neoplasm [Unknown]
  - Diffuse large B-cell lymphoma recurrent [Unknown]
  - Metabolic disorder [Unknown]
  - Lymphadenopathy [Unknown]
  - Blood lactate dehydrogenase increased [Unknown]
  - Lymphoedema [Unknown]
